FAERS Safety Report 18156186 (Version 1)
Quarter: 2020Q3

REPORT INFORMATION
  Report Type: Spontaneous
  Country: US (occurrence: US)
  Receive Date: 20200815
  Receipt Date: 20200815
  Transmission Date: 20201103
  Serious: No
  Sender: FDA-Public Use
  Company Number: None

PATIENT
  Age: 48 Year
  Sex: Female
  Weight: 94.5 kg

DRUGS (7)
  1. ASTHMA INHALER [Concomitant]
     Active Substance: UNSPECIFIED INGREDIENT
  2. RAW SUGAR HAND SANITIZER? COCONUT AND LEMON VERBENA [Suspect]
     Active Substance: ALCOHOL
     Indication: COVID-19 PROPHYLAXIS
     Route: 061
     Dates: start: 20200806, end: 20200815
  3. VITAMIN D [Concomitant]
     Active Substance: VITAMIN D NOS
  4. IBUPROFEN. [Concomitant]
     Active Substance: IBUPROFEN
  5. VITAMIN C [Concomitant]
     Active Substance: ASCORBIC ACID
  6. FLONASE [Concomitant]
     Active Substance: FLUTICASONE PROPIONATE
  7. LORATADINE. [Concomitant]
     Active Substance: LORATADINE

REACTIONS (3)
  - Dyspnoea [None]
  - Abdominal pain upper [None]
  - Product odour abnormal [None]

NARRATIVE: CASE EVENT DATE: 20200806
